FAERS Safety Report 9348058 (Version 1)
Quarter: 2013Q2

REPORT INFORMATION
  Report Type: Report from Study
  Country: CA (occurrence: CA)
  Receive Date: 20130614
  Receipt Date: 20130614
  Transmission Date: 20140414
  Serious: Yes (Other)
  Sender: FDA-Public Use
  Company Number: CA-JNJFOC-20130603573

PATIENT
  Sex: Male
  Weight: 43 kg

DRUGS (4)
  1. REMICADE [Suspect]
     Indication: PRODUCT USED FOR UNKNOWN INDICATION
     Route: 042
     Dates: end: 2002
  2. REMICADE [Suspect]
     Indication: PRODUCT USED FOR UNKNOWN INDICATION
     Route: 042
     Dates: start: 20130603
  3. PREDNISONE [Concomitant]
     Route: 065
  4. CIPROFLOXACIN [Concomitant]
     Route: 065

REACTIONS (2)
  - Varicella [Unknown]
  - Haemoglobin decreased [Recovered/Resolved]
